FAERS Safety Report 4707166-4 (Version None)
Quarter: 2005Q3

REPORT INFORMATION
  Report Type: 
  Country: None (occurrence: None)
  Receive Date: 20050706
  Receipt Date: 20050624
  Transmission Date: 20060218
  Serious: Yes (Hospitalization)
  Sender: FDA-Public Use
  Company Number: AT-JNJFOC-20050607090

PATIENT
  Age: 60 Year
  Sex: Female
  Weight: 104 kg

DRUGS (8)
  1. REMICADE [Suspect]
     Indication: RHEUMATOID ARTHRITIS
     Route: 042
  2. PREDNISOLONE [Concomitant]
     Indication: RHEUMATOID ARTHRITIS
     Route: 049
  3. LEVOTHYROXINE SODIUM [Concomitant]
     Indication: HYPOTHYROIDISM
     Route: 049
  4. VALSARTAN [Concomitant]
     Indication: HYPERTENSION
     Route: 049
  5. COUMARINE [Concomitant]
     Route: 049
  6. MOXONIDINE [Concomitant]
     Indication: HYPERTENSION
     Route: 049
  7. FLAVONOID FRACTION [Concomitant]
     Route: 049
  8. CALCIUM GLUCONATE [Concomitant]
     Indication: OSTEOPOROSIS
     Route: 049

REACTIONS (1)
  - HAEMATOMA [None]
